FAERS Safety Report 22706189 (Version 2)
Quarter: 2024Q2

REPORT INFORMATION
  Report Type: Spontaneous
  Country: JP (occurrence: JP)
  Receive Date: 20230714
  Receipt Date: 20240607
  Transmission Date: 20240716
  Serious: Yes (Hospitalization)
  Sender: FDA-Public Use
  Company Number: JP-ORG100014127-2023000733

PATIENT
  Weight: 2.15 kg

DRUGS (1)
  1. METYRAPONE [Suspect]
     Active Substance: METYRAPONE
     Indication: Exposure during pregnancy
     Route: 064

REACTIONS (3)
  - Premature baby [Recovered/Resolved]
  - Low birth weight baby [Not Recovered/Not Resolved]
  - Maternal exposure during pregnancy [Recovered/Resolved]
